FAERS Safety Report 24789579 (Version 1)
Quarter: 2024Q4

REPORT INFORMATION
  Report Type: Spontaneous
  Country: US (occurrence: US)
  Receive Date: 20241230
  Receipt Date: 20241230
  Transmission Date: 20250115
  Serious: No
  Sender: BAXTER
  Company Number: US-BAXTER-2024BAX030053

PATIENT

DRUGS (1)
  1. VANCOMYCIN HYDROCHLORIDE [Suspect]
     Active Substance: VANCOMYCIN HYDROCHLORIDE
     Dosage: UNK
     Route: 042

REACTIONS (4)
  - Infusion site erythema [Unknown]
  - Infusion site pain [Unknown]
  - Infusion site swelling [Unknown]
  - Incorrect drug administration rate [Unknown]
